FAERS Safety Report 18108012 (Version 1)
Quarter: 2020Q3

REPORT INFORMATION
  Report Type: Spontaneous
  Country: CN (occurrence: CN)
  Receive Date: 20200804
  Receipt Date: 20200804
  Transmission Date: 20201103
  Serious: Yes (Other)
  Sender: FDA-Public Use
  Company Number: CN-ROCHE-2652254

PATIENT
  Age: 39 Year
  Sex: Female

DRUGS (23)
  1. FLUOROURACIL. [Concomitant]
     Active Substance: FLUOROURACIL
     Indication: RECTAL CANCER
     Dates: start: 20161001
  2. APATINIB [Concomitant]
     Active Substance: APATINIB
     Dosage: MAINTENANCE TREATMENT
     Dates: start: 20190301
  3. REGORAFENIB. [Concomitant]
     Active Substance: REGORAFENIB
     Dosage: 14 APR?2020, 28 APR 2020, 12 MAY 2020 AND 26 MAY 2020
     Route: 048
  4. AVASTIN [Suspect]
     Active Substance: BEVACIZUMAB
     Indication: ADENOCARCINOMA
     Route: 065
     Dates: start: 20200103
  5. OXALIPLATIN. [Concomitant]
     Active Substance: OXALIPLATIN
     Indication: METASTASES TO LIVER
  6. IRINOTECAN [Concomitant]
     Active Substance: IRINOTECAN
     Indication: RECTAL CANCER
     Dates: start: 20161001
  7. IRINOTECAN [Concomitant]
     Active Substance: IRINOTECAN
     Dates: start: 20161101
  8. XELODA [Suspect]
     Active Substance: CAPECITABINE
     Indication: RECTAL CANCER
     Route: 048
     Dates: start: 20151029, end: 20160404
  9. CALCIUM FOLINATE [Concomitant]
     Active Substance: LEUCOVORIN CALCIUM
     Dates: start: 20161101
  10. FLUOROURACIL. [Concomitant]
     Active Substance: FLUOROURACIL
     Dates: start: 20161101
  11. APATINIB [Concomitant]
     Active Substance: APATINIB
     Dates: start: 20181201
  12. TEGAFUR GIMERACIL AND OTERACIL POTASSIUM [Concomitant]
     Active Substance: GIMERACIL\OTERACIL\TEGAFUR
     Indication: RECTAL CANCER
     Dates: start: 20181201
  13. CETUXIMAB. [Concomitant]
     Active Substance: CETUXIMAB
     Indication: RECTAL CANCER
     Dates: start: 20161101
  14. XELODA [Suspect]
     Active Substance: CAPECITABINE
     Indication: ADENOCARCINOMA
     Dosage: NEXT TREATMENT ON 03/JAN/2020
     Route: 048
  15. OXALIPLATIN. [Concomitant]
     Active Substance: OXALIPLATIN
     Indication: RECTAL CANCER
     Dates: start: 20151029, end: 20160404
  16. APATINIB [Concomitant]
     Active Substance: APATINIB
     Indication: RECTAL CANCER
     Dosage: PER DAY
     Dates: start: 2018, end: 201808
  17. APATINIB [Concomitant]
     Active Substance: APATINIB
     Dosage: MAINTENANCE TREATMENT
     Dates: start: 20181001
  18. AVASTIN [Suspect]
     Active Substance: BEVACIZUMAB
     Indication: RECTAL CANCER
     Route: 065
     Dates: start: 20191220
  19. OXALIPLATIN. [Concomitant]
     Active Substance: OXALIPLATIN
     Indication: ADENOCARCINOMA
  20. CALCIUM FOLINATE [Concomitant]
     Active Substance: LEUCOVORIN CALCIUM
     Indication: RECTAL CANCER
     Dates: start: 20161001
  21. FLUOROURACIL. [Concomitant]
     Active Substance: FLUOROURACIL
     Route: 042
     Dates: start: 20191220
  22. REGORAFENIB. [Concomitant]
     Active Substance: REGORAFENIB
     Indication: RECTAL CANCER
     Route: 048
     Dates: start: 20200101
  23. RALTITREXED [Concomitant]
     Active Substance: RALTITREXED
     Indication: RECTAL CANCER
     Dates: start: 20180401

REACTIONS (5)
  - Drug-induced liver injury [Unknown]
  - Neurotoxicity [Unknown]
  - Gastrointestinal disorder [Unknown]
  - Hypoaesthesia [Unknown]
  - Myelosuppression [Unknown]
